FAERS Safety Report 15076324 (Version 1)
Quarter: 2018Q2

REPORT INFORMATION
  Report Type: Report from Study
  Country: KR (occurrence: KR)
  Receive Date: 20180627
  Receipt Date: 20180627
  Transmission Date: 20180711
  Serious: Yes (Hospitalization)
  Sender: FDA-Public Use
  Company Number: KR-CELLTRION INC.-2013KR004960

PATIENT

DRUGS (6)
  1. PENTASA [Concomitant]
     Active Substance: MESALAMINE
     Indication: PRODUCT USED FOR UNKNOWN INDICATION
     Dosage: 2 G, UNK
  2. REMSIMA [Suspect]
     Active Substance: INFLIXIMAB
     Dosage: 260 MG, UNK
     Route: 042
     Dates: start: 20130323, end: 20130323
  3. AZATHIOPRINE. [Concomitant]
     Active Substance: AZATHIOPRINE
     Indication: PRODUCT USED FOR UNKNOWN INDICATION
     Dosage: 100 MG, UNK
  4. REMSIMA [Suspect]
     Active Substance: INFLIXIMAB
     Indication: CROHN^S DISEASE
     Dosage: 260 MG
     Route: 042
     Dates: start: 20130309, end: 20130309
  5. REMSIMA [Suspect]
     Active Substance: INFLIXIMAB
     Dosage: 260 MG, UNK
     Route: 042
     Dates: start: 20130420, end: 20130420
  6. REMSIMA [Suspect]
     Active Substance: INFLIXIMAB
     Dosage: 260 MG, UNK
     Route: 042
     Dates: start: 20130615, end: 20130615

REACTIONS (1)
  - Gastritis [Recovered/Resolved]

NARRATIVE: CASE EVENT DATE: 20130722
